FAERS Safety Report 7008081-6 (Version None)
Quarter: 2010Q3

REPORT INFORMATION
  Report Type: 
  Country: None (occurrence: None)
  Receive Date: 20100922
  Receipt Date: 20100913
  Transmission Date: 20110219
  Serious: Yes (Other)
  Sender: FDA-Public Use
  Company Number: GXKR2010BE10374

PATIENT
  Age: 64 Year
  Sex: Female

DRUGS (2)
  1. ALENDRONIC ACID (NGX) [Suspect]
     Indication: OSTEOLYSIS
     Route: 065
  2. ALENDRONIC ACID (NGX) [Suspect]
     Indication: PAIN

REACTIONS (3)
  - FEMUR FRACTURE [None]
  - INTERNAL FIXATION OF FRACTURE [None]
  - PAIN IN EXTREMITY [None]
